FAERS Safety Report 9349457 (Version 1)
Quarter: 2013Q2

REPORT INFORMATION
  Report Type: Spontaneous
  Country: US (occurrence: US)
  Receive Date: 20130614
  Receipt Date: 20130614
  Transmission Date: 20140414
  Serious: No
  Sender: FDA-Public Use
  Company Number: US-ASTRAZENECA-2013SE40903

PATIENT
  Age: 71 Year
  Sex: Female
  Weight: 97.5 kg

DRUGS (12)
  1. RHINOCORT AQUA [Suspect]
     Indication: RHINITIS
     Dosage: 32 MCG 2 PUFFS BID
     Route: 045
     Dates: start: 2008, end: 201211
  2. RHINOCORT AQUA [Suspect]
     Indication: RHINITIS
     Dosage: 32 MCG 2 PUFFS BID
     Route: 045
     Dates: start: 201304, end: 201305
  3. SIMVASTATIN [Concomitant]
     Indication: BLOOD CHOLESTEROL
  4. EVISTA [Concomitant]
     Indication: OSTEOPOROSIS
  5. SYNTHROID [Concomitant]
     Indication: THYROID DISORDER
  6. MELOXICAM [Concomitant]
     Indication: ARTHRITIS
  7. LIBRIUM [Concomitant]
     Indication: ANXIETY
  8. FUROSEMIDE [Concomitant]
     Indication: FLUID RETENTION
  9. DIOVAN [Concomitant]
     Indication: BLOOD PRESSURE
  10. POTASSIUM [Concomitant]
     Indication: DIURETIC THERAPY
  11. ADVAIR [Concomitant]
     Indication: ASTHMA
  12. ZETONNA [Concomitant]

REACTIONS (5)
  - Cough [Recovered/Resolved]
  - Malaise [Recovered/Resolved]
  - Headache [Recovered/Resolved]
  - Bronchitis [Unknown]
  - Intentional drug misuse [Unknown]
